FAERS Safety Report 5092518-6 (Version None)
Quarter: 2006Q3

REPORT INFORMATION
  Report Type: 
  Country: None (occurrence: None)
  Receive Date: 20060828
  Receipt Date: 20060817
  Transmission Date: 20061208
  Serious: Yes (Other)
  Sender: FDA-Public Use
  Company Number: 2006100559

PATIENT
  Age: 41 Year
  Sex: Female
  Weight: 57.1532 kg

DRUGS (4)
  1. NEURONTIN [Suspect]
     Indication: NERVE INJURY
     Dosage: UNK (1 IN 1 D); ORAL
     Route: 048
     Dates: start: 20000101
  2. CELEBREX [Concomitant]
  3. ACETAMINOPHEN [Concomitant]
  4. FLEXERIL [Concomitant]

REACTIONS (3)
  - DRUG DEPENDENCE [None]
  - TREMOR [None]
  - VISION BLURRED [None]
